FAERS Safety Report 6380262-4 (Version None)
Quarter: 2009Q3

REPORT INFORMATION
  Report Type: 
  Country: None (occurrence: None)
  Receive Date: 20090929
  Receipt Date: 20090917
  Transmission Date: 20100115
  Serious: Yes (Hospitalization)
  Sender: FDA-Public Use
  Company Number: JP-ABBOTT-09P-087-0562636-00

PATIENT
  Age: 85 Year
  Sex: Male

DRUGS (4)
  1. LEUPLIN SR FOR INJECTION 11.25 MG [Suspect]
     Indication: PROSTATE CANCER STAGE II
     Route: 058
     Dates: start: 20071019
  2. POTOREND [Concomitant]
     Indication: HYPERURICAEMIA
     Route: 048
  3. URINORM [Concomitant]
     Indication: HYPERURICAEMIA
     Route: 048
  4. BIOLACTIS [Concomitant]
     Indication: CONSTIPATION
     Route: 048
     Dates: start: 20080908

REACTIONS (1)
  - BLADDER CANCER [None]
